FAERS Safety Report 6283309-9 (Version None)
Quarter: 2009Q3

REPORT INFORMATION
  Report Type: 
  Country: None (occurrence: None)
  Receive Date: 20090724
  Receipt Date: 20090122
  Transmission Date: 20100115
  Serious: No
  Sender: FDA-Public Use
  Company Number: US-AMGEN-KDL329939

PATIENT
  Age: 85 Year
  Sex: Female

DRUGS (2)
  1. PROCRIT [Suspect]
     Indication: RENAL FAILURE CHRONIC
     Dates: start: 20071105
  2. IRON SULFATETHIAMIN COMPOUND TAB [Concomitant]
     Dates: start: 20090121

REACTIONS (1)
  - SERUM FERRITIN INCREASED [None]
